FAERS Safety Report 23798171 (Version 1)
Quarter: 2024Q2

REPORT INFORMATION
  Report Type: Spontaneous
  Country: US (occurrence: US)
  Receive Date: 20240430
  Receipt Date: 20240430
  Transmission Date: 20240716
  Serious: Yes (Hospitalization)
  Sender: FDA-Public Use
  Company Number: US-STRIDES ARCOLAB LIMITED-2024SP004946

PATIENT
  Age: 90 Year
  Sex: Male

DRUGS (5)
  1. HYDROCORTISONE [Suspect]
     Active Substance: HYDROCORTISONE
     Indication: Addison^s disease
     Dosage: 20 MILLIGRAM, TID
     Route: 065
  2. HYDROCORTISONE [Suspect]
     Active Substance: HYDROCORTISONE
     Dosage: UNK (RECEIVED STRESS DOSE POSTOPERATIVELY)
     Route: 065
  3. HYDROCORTISONE [Suspect]
     Active Substance: HYDROCORTISONE
     Dosage: UNK (TAPERED DOWN BY POSTOPERATIVE DAY 4)
     Route: 065
  4. FLUDROCORTISONE [Suspect]
     Active Substance: FLUDROCORTISONE
     Indication: Addison^s disease
     Dosage: 0.05 MILLIGRAM, OD
     Route: 065
  5. METHYLPREDNISOLONE [Concomitant]
     Active Substance: METHYLPREDNISOLONE
     Indication: Addison^s disease
     Dosage: 4 MILLIGRAM (A DOSE)
     Route: 042

REACTIONS (5)
  - Diverticular perforation [Recovered/Resolved]
  - Pneumoretroperitoneum [Recovered/Resolved]
  - Pneumomediastinum [Recovered/Resolved]
  - Emphysema [Recovered/Resolved]
  - Abdominal abscess [Unknown]
